FAERS Safety Report 12766598 (Version 1)
Quarter: 2016Q3

REPORT INFORMATION
  Report Type: Spontaneous
  Country: US (occurrence: US)
  Receive Date: 20160921
  Receipt Date: 20160921
  Transmission Date: 20161109
  Serious: Yes (Hospitalization)
  Sender: FDA-Public Use
  Company Number: US-B.I. PHARMACEUTICALS,INC./RIDGEFIELD-2016-BI-59987BP

PATIENT
  Sex: Female

DRUGS (2)
  1. COMBIVENT [Suspect]
     Active Substance: ALBUTEROL SULFATE\IPRATROPIUM BROMIDE
     Dosage: STRENGTH AND DOSE PER APPLICATION: 20MCG/100 MCG, DAILY DOSE: 2 INHALATION SPRAY 2 TIME PER AS REQUI
     Route: 055
     Dates: start: 2015
  2. COMBIVENT [Suspect]
     Active Substance: ALBUTEROL SULFATE\IPRATROPIUM BROMIDE
     Indication: CHRONIC OBSTRUCTIVE PULMONARY DISEASE
     Dosage: STRENGTH AND DOSE PER APPLICATION: 20MCG / 100 MCG; DAILY DOSE: 2 INHALATION SPRAY 4 TIME PER DAY
     Route: 055
     Dates: start: 2011, end: 2015

REACTIONS (4)
  - Upper respiratory tract infection [Unknown]
  - Malaise [Unknown]
  - Medication error [Unknown]
  - Renal failure [Not Recovered/Not Resolved]

NARRATIVE: CASE EVENT DATE: 2011
